FAERS Safety Report 5129722-4 (Version None)
Quarter: 2006Q4

REPORT INFORMATION
  Report Type: 
  Country: None (occurrence: None)
  Receive Date: 20061018
  Receipt Date: 20061011
  Transmission Date: 20070319
  Serious: Yes (Life-Threatening, Hospitalization)
  Sender: FDA-Public Use
  Company Number: DE-ROCHE-466839

PATIENT
  Age: 63 Year
  Sex: Female

DRUGS (2)
  1. DACLIZUMAB [Suspect]
     Route: 048
     Dates: start: 20060826
  2. FK506 [Suspect]
     Route: 048
     Dates: start: 20060826

REACTIONS (6)
  - ANASTOMOTIC COMPLICATION [None]
  - BILE DUCT NECROSIS [None]
  - BRADYCARDIA [None]
  - CARDIAC ARREST [None]
  - DUODENAL PERFORATION [None]
  - PERITONITIS [None]
